FAERS Safety Report 23281919 (Version 1)
Quarter: 2023Q4

REPORT INFORMATION
  Report Type: Report from Study
  Country: CA (occurrence: CA)
  Receive Date: 20231211
  Receipt Date: 20231211
  Transmission Date: 20240110
  Serious: Yes (Other)
  Sender: FDA-Public Use
  Company Number: CA-TAKEDA-2023TUS117609

PATIENT
  Sex: Male
  Weight: 78 kg

DRUGS (3)
  1. VEDOLIZUMAB [Suspect]
     Active Substance: VEDOLIZUMAB
     Indication: Colitis ulcerative
     Dosage: 300 MILLIGRAM
     Route: 042
     Dates: start: 20231017
  2. MESALAMINE [Concomitant]
     Active Substance: MESALAMINE
     Dosage: 4.8 GRAM, QD
     Route: 048
  3. Cortiment [Concomitant]
     Dosage: 9 MILLIGRAM, QD
     Route: 048

REACTIONS (3)
  - Haematochezia [Unknown]
  - Impaired quality of life [Unknown]
  - Frequent bowel movements [Unknown]
